FAERS Safety Report 6365146-X (Version None)
Quarter: 2009Q3

REPORT INFORMATION
  Report Type: 
  Country: None (occurrence: None)
  Receive Date: 20090919
  Receipt Date: 20090806
  Transmission Date: 20100115
  Serious: No
  Sender: FDA-Public Use
  Company Number: US-ABBOTT-09P-163-0590083-00

PATIENT
  Sex: Female
  Weight: 48.124 kg

DRUGS (7)
  1. HUMIRA [Suspect]
     Indication: CROHN'S DISEASE
     Dates: start: 20090709, end: 20090709
  2. HUMIRA [Suspect]
     Dates: start: 20090723, end: 20090723
  3. ACIPHEX [Concomitant]
     Indication: GASTROOESOPHAGEAL REFLUX DISEASE
  4. FLAGYL [Concomitant]
     Indication: GASTROINTESTINAL DISORDER
  5. VIVONEX [Concomitant]
     Indication: MEDICAL DIET
  6. KLOR-CON [Concomitant]
     Indication: BLOOD POTASSIUM DECREASED
  7. SPIRONOLACTONE [Concomitant]
     Indication: OEDEMA PERIPHERAL

REACTIONS (1)
  - OEDEMA PERIPHERAL [None]
